FAERS Safety Report 10651747 (Version 1)
Quarter: 2014Q4

REPORT INFORMATION
  Report Type: Spontaneous
  Country: CH (occurrence: CH)
  Receive Date: 20141215
  Receipt Date: 20141215
  Transmission Date: 20150529
  Serious: Yes (Hospitalization, Disabling)
  Sender: FDA-Public Use
  Company Number: CH-PFIZER INC-2014339319

PATIENT
  Age: 33 Year
  Sex: Male

DRUGS (14)
  1. FRAGMIN [Concomitant]
     Active Substance: DALTEPARIN SODIUM
     Dosage: UNK
  2. ACIDUM FOLICUM [Concomitant]
     Active Substance: FOLIC ACID
     Dosage: UNK
  3. TEGRETOL [Concomitant]
     Active Substance: CARBAMAZEPINE
     Dosage: UNK
  4. PANTOZOL [Suspect]
     Active Substance: PANTOPRAZOLE SODIUM
     Dosage: 40 MG, 1X/DAY
     Route: 048
     Dates: start: 2014, end: 201411
  5. NOPIL [Concomitant]
     Active Substance: SULFAMETHOXAZOLE\TRIMETHOPRIM
     Dosage: UNK
  6. PREDNISON [Concomitant]
     Active Substance: PREDNISONE
     Dosage: UNK
  7. ACTEMRA [Suspect]
     Active Substance: TOCILIZUMAB
     Indication: GRAFT VERSUS HOST DISEASE
     Dosage: 1 DF, CYCLIC
     Route: 042
     Dates: start: 201310, end: 20141016
  8. KEPPRA [Concomitant]
     Active Substance: LEVETIRACETAM
     Dosage: UNK
  9. SANDIMMUNE [Suspect]
     Active Substance: CYCLOSPORINE
     Indication: ALLOGENIC BONE MARROW TRANSPLANTATION THERAPY
     Dosage: 1 DF, AS NEEDED
     Route: 048
     Dates: start: 200606, end: 200803
  10. FAMVIR [Concomitant]
     Active Substance: FAMCICLOVIR
     Dosage: UNK
  11. MAGNESIOCARD [Concomitant]
     Active Substance: MAGNESIUM ASPARTATE HYDROCHLORIDE
     Dosage: UNK
  12. ATORVASTATIN [Concomitant]
     Active Substance: ATORVASTATIN
     Dosage: UNK
  13. BECOZYME [Concomitant]
     Dosage: UNK
  14. PRADIF [Concomitant]
     Dosage: UNK

REACTIONS (4)
  - Tubulointerstitial nephritis [Recovered/Resolved]
  - Granuloma [Unknown]
  - Acute kidney injury [Recovered/Resolved]
  - Nephropathy toxic [Not Recovered/Not Resolved]

NARRATIVE: CASE EVENT DATE: 200804
